FAERS Safety Report 8217583-6 (Version None)
Quarter: 2012Q1

REPORT INFORMATION
  Report Type: 
  Country: None (occurrence: None)
  Receive Date: 20120319
  Receipt Date: 20120319
  Transmission Date: 20120608
  Serious: No
  Sender: FDA-Public Use
  Company Number: None

PATIENT
  Age: 49 Year
  Sex: Female
  Weight: 70.306 kg

DRUGS (1)
  1. VENLAFAXINE HCL EXTENDED-RELEASE [Suspect]
     Indication: MAJOR DEPRESSION
     Dosage: 300 MG
     Route: 048
     Dates: start: 20120113, end: 20120123

REACTIONS (7)
  - MALAISE [None]
  - ACTIVITIES OF DAILY LIVING IMPAIRED [None]
  - PRODUCT SUBSTITUTION ISSUE [None]
  - IMPAIRED DRIVING ABILITY [None]
  - HEADACHE [None]
  - DRUG WITHDRAWAL SYNDROME [None]
  - DIZZINESS [None]
